FAERS Safety Report 20148848 (Version 2)
Quarter: 2021Q4

REPORT INFORMATION
  Report Type: Spontaneous
  Country: ES (occurrence: ES)
  Receive Date: 20211204
  Receipt Date: 20211221
  Transmission Date: 20220303
  Serious: Yes (Other)
  Sender: FDA-Public Use
  Company Number: ES-SA-SAC20211203000166

PATIENT
  Age: 17 Year
  Sex: Male

DRUGS (5)
  1. IMIGLUCERASE [Suspect]
     Active Substance: IMIGLUCERASE
     Indication: Gaucher^s disease type I
     Dosage: 60 IU/KG, QOW
     Dates: start: 200201
  2. IMIGLUCERASE [Suspect]
     Active Substance: IMIGLUCERASE
     Dosage: UNK UNK, QOW
     Dates: start: 2016
  3. IMIGLUCERASE [Suspect]
     Active Substance: IMIGLUCERASE
     Dosage: 30 U/KG, Q3W
     Dates: start: 200712
  4. IMIGLUCERASE [Suspect]
     Active Substance: IMIGLUCERASE
     Dosage: 2000 IU, Q3W
  5. VELAGLUCERASE ALFA [Concomitant]
     Active Substance: VELAGLUCERASE ALFA
     Dosage: UNK, Q15D

REACTIONS (4)
  - Leukopenia [Unknown]
  - Osteoporosis [Unknown]
  - Hepatomegaly [Unknown]
  - Chitotriosidase increased [Unknown]

NARRATIVE: CASE EVENT DATE: 20170201
